FAERS Safety Report 13135843 (Version 1)
Quarter: 2017Q1

REPORT INFORMATION
  Report Type: Spontaneous
  Country: US (occurrence: US)
  Receive Date: 20170120
  Receipt Date: 20170120
  Transmission Date: 20170428
  Serious: Yes (Other)
  Sender: FDA-Public Use
  Company Number: US-BOIRON INC.-2017BOR00001

PATIENT
  Age: 73 Year
  Sex: Male

DRUGS (1)
  1. ARNICARE [Suspect]
     Active Substance: HOMEOPATHICS
     Indication: TUMOUR PAIN
     Dosage: UNK UNK, 1X/DAY
     Route: 061
     Dates: start: 201612

REACTIONS (4)
  - Tumour haemorrhage [Recovered/Resolved]
  - Malaise [Unknown]
  - Asthenia [Unknown]
  - Off label use [Unknown]

NARRATIVE: CASE EVENT DATE: 201612
